FAERS Safety Report 21942020 (Version 1)
Quarter: 2023Q1

REPORT INFORMATION
  Report Type: Report from Study
  Country: US (occurrence: US)
  Receive Date: 20230202
  Receipt Date: 20230202
  Transmission Date: 20230417
  Serious: No
  Sender: FDA-Public Use
  Company Number: US-EXELIXIS-CABO-22056122

PATIENT
  Sex: Male

DRUGS (2)
  1. CABOMETYX [Suspect]
     Active Substance: CABOZANTINIB S-MALATE
     Indication: Renal cancer
     Dosage: 40 MG, QD
     Route: 048
  2. CABOMETYX [Suspect]
     Active Substance: CABOZANTINIB S-MALATE
     Dosage: 40 MG, QD
     Route: 048

REACTIONS (11)
  - Erythema [Recovering/Resolving]
  - Liver function test abnormal [Unknown]
  - Arthropathy [Recovering/Resolving]
  - Musculoskeletal pain [Unknown]
  - Peripheral swelling [Unknown]
  - Oral pain [Unknown]
  - Blood pressure increased [Unknown]
  - Decreased appetite [Unknown]
  - Fatigue [Recovering/Resolving]
  - Gait disturbance [Unknown]
  - Product dose omission issue [Unknown]
